FAERS Safety Report 24533075 (Version 2)
Quarter: 2024Q4

REPORT INFORMATION
  Report Type: Report from Study
  Country: BE (occurrence: BE)
  Receive Date: 20241022
  Receipt Date: 20241108
  Transmission Date: 20250115
  Serious: Yes (Hospitalization)
  Sender: PFIZER
  Company Number: BE-PFIZER INC-PV202400134510

PATIENT
  Age: 69 Year
  Sex: Male
  Weight: 74.4 kg

DRUGS (5)
  1. DIFLUCAN [Suspect]
     Active Substance: FLUCONAZOLE
     Dosage: UNK, DAILY
     Dates: start: 20240819, end: 20240821
  2. MEDROL [Suspect]
     Active Substance: METHYLPREDNISOLONE
     Dosage: UNK
     Dates: start: 20180226
  3. ITACITINIB [Suspect]
     Active Substance: ITACITINIB
     Indication: Bronchiolitis obliterans syndrome
     Dosage: 400 MG, QD, REGIMEN #1
     Route: 048
     Dates: start: 20231013
  4. ITACITINIB [Suspect]
     Active Substance: ITACITINIB
     Dosage: 300 MG, QD, REGIMEN #2
     Route: 048
     Dates: start: 20240830, end: 20240915
  5. TACROLIMUS [Suspect]
     Active Substance: TACROLIMUS
     Dosage: UNK
     Dates: start: 20170224

REACTIONS (7)
  - Cryptococcal fungaemia [Recovering/Resolving]
  - Oesophageal candidiasis [Recovered/Resolved]
  - Bronchopulmonary aspergillosis [Recovering/Resolving]
  - Transplant rejection [Not Recovered/Not Resolved]
  - Calculus urinary [Recovered/Resolved]
  - Anaemia [Recovered/Resolved]
  - Haemoptysis [Recovered/Resolved]

NARRATIVE: CASE EVENT DATE: 20240731
